FAERS Safety Report 5819900-0 (Version None)
Quarter: 2008Q3

REPORT INFORMATION
  Report Type: 
  Country: None (occurrence: None)
  Receive Date: 20080723
  Receipt Date: 20080715
  Transmission Date: 20090109
  Serious: Yes (Death)
  Sender: FDA-Public Use
  Company Number: US-GENENTECH-264874

PATIENT
  Age: 49 Year
  Sex: Female

DRUGS (10)
  1. AVASTIN [Suspect]
     Indication: GLIOMA
     Dosage: 10 MG/KG, DAYS 1+15
     Route: 042
     Dates: start: 20080107
  2. ENZASTAURIN [Suspect]
     Indication: GLIOMA
     Dosage: 1125 MG, D1, CYCLE 1
     Route: 048
  3. ENZASTAURIN [Suspect]
     Dosage: 875 MG, QD
     Route: 048
  4. KEPPRA [Concomitant]
     Indication: DRUG USE FOR UNKNOWN INDICATION
  5. DILANTIN [Concomitant]
     Indication: DRUG USE FOR UNKNOWN INDICATION
  6. PROTONIX [Concomitant]
     Indication: DRUG USE FOR UNKNOWN INDICATION
  7. DECADRON [Concomitant]
  8. BACTRIM [Concomitant]
  9. WELLBUTRIN [Concomitant]
  10. CITALOPRAM HYDROBROMIDE [Concomitant]

REACTIONS (12)
  - CEPHALHAEMATOMA [None]
  - CONVULSION [None]
  - DRUG DOSE OMISSION [None]
  - FALL [None]
  - GLIOBLASTOMA [None]
  - HEAD INJURY [None]
  - MALIGNANT NEOPLASM PROGRESSION [None]
  - PERICARDIAL EFFUSION [None]
  - PLATELET COUNT DECREASED [None]
  - PULMONARY EMBOLISM [None]
  - PURPURA [None]
  - UNRESPONSIVE TO STIMULI [None]
